FAERS Safety Report 16340437 (Version 1)
Quarter: 2019Q2

REPORT INFORMATION
  Report Type: Report from Study
  Country: CO (occurrence: CO)
  Receive Date: 20190522
  Receipt Date: 20190522
  Transmission Date: 20190711
  Serious: Yes (Hospitalization, Other)
  Sender: FDA-Public Use
  Company Number: CO-AMGEN-COLSL2018118915

PATIENT
  Age: 73 Year
  Sex: Female

DRUGS (4)
  1. NPLATE [Suspect]
     Active Substance: ROMIPLOSTIM
     Dosage: 250 MICROGRAM, QWK
     Route: 058
  2. NPLATE [Suspect]
     Active Substance: ROMIPLOSTIM
     Indication: IMMUNE THROMBOCYTOPENIC PURPURA
     Dosage: 50 MICROGRAM, QWK
     Route: 058
     Dates: start: 20180719
  3. NPLATE [Suspect]
     Active Substance: ROMIPLOSTIM
     Dosage: 50 MICROGRAM, QWK
     Route: 058
     Dates: start: 2018
  4. NPLATE [Suspect]
     Active Substance: ROMIPLOSTIM
     Dosage: 50 MICROGRAM, Q2WK
     Route: 058

REACTIONS (3)
  - Influenza [Recovered/Resolved]
  - Thrombocytopenia [Recovered/Resolved]
  - Diarrhoea [Recovered/Resolved]

NARRATIVE: CASE EVENT DATE: 20190402
